FAERS Safety Report 14757907 (Version 4)
Quarter: 2018Q3

REPORT INFORMATION
  Report Type: Report from Study
  Country: US (occurrence: US)
  Receive Date: 20180413
  Receipt Date: 20180709
  Transmission Date: 20181010
  Serious: Yes (Hospitalization, Other)
  Sender: FDA-Public Use
  Company Number: US-PFIZER INC-2018034837

PATIENT
  Age: 68 Year
  Sex: Female

DRUGS (5)
  1. IBRANCE [Suspect]
     Active Substance: PALBOCICLIB
     Dosage: 125 MG, EVERY OTHER DAY
     Route: 048
     Dates: start: 20180427
  2. IBRANCE [Suspect]
     Active Substance: PALBOCICLIB
     Dosage: 125 MG, UNK
     Route: 048
     Dates: start: 20180406
  3. IBRANCE [Suspect]
     Active Substance: PALBOCICLIB
     Dosage: 100 MG, CYCLIC [DAILY 21 DAYS ON 7 DAYS OFF]
     Route: 048
     Dates: start: 20180615
  4. IBRANCE [Suspect]
     Active Substance: PALBOCICLIB
     Indication: BREAST CANCER FEMALE
     Dosage: 125 MG, DAILY
     Route: 048
     Dates: start: 20180113, end: 20180216
  5. IBRANCE [Suspect]
     Active Substance: PALBOCICLIB
     Dosage: 125 MG, DAILY
     Route: 048
     Dates: start: 20180306, end: 20180316

REACTIONS (7)
  - Nausea [Unknown]
  - Femur fracture [Unknown]
  - White blood cell count decreased [Unknown]
  - Drug dose omission [Unknown]
  - Eczema [Unknown]
  - Fatigue [Unknown]
  - Joint destruction [Unknown]

NARRATIVE: CASE EVENT DATE: 2018
